FAERS Safety Report 8717831 (Version 3)
Quarter: 2012Q4

REPORT INFORMATION
  Report Type: Report from Study
  Country: CA (occurrence: CA)
  Receive Date: 20120810
  Receipt Date: 20121030
  Transmission Date: 20130627
  Serious: Yes (Other)
  Sender: FDA-Public Use
  Company Number: CA-ROCHE-1097287

PATIENT
  Sex: Male
  Weight: 90.8 kg

DRUGS (16)
  1. TOCILIZUMAB [Suspect]
     Indication: RHEUMATOID ARTHRITIS
     Route: 042
     Dates: start: 20120502, end: 20121024
  2. METHOTREXATE [Concomitant]
  3. LEUCOVORIN [Concomitant]
  4. ZOPICLONE [Concomitant]
  5. LORAZEPAM [Concomitant]
  6. CRESTOR [Concomitant]
  7. FUROSEMIDE [Concomitant]
  8. CARVEDILOL [Concomitant]
  9. ASPIRIN ENTERIC COATED [Concomitant]
  10. CYMBALTA [Concomitant]
  11. COLACE [Concomitant]
  12. NEXIUM [Concomitant]
  13. OXYCODONE HCL [Concomitant]
  14. SENOKOT [Concomitant]
  15. ANDRIOL [Concomitant]
  16. EZETROL [Concomitant]

REACTIONS (4)
  - Arthralgia [Unknown]
  - Drug effect decreased [Unknown]
  - Drug ineffective [Unknown]
  - Rheumatoid arthritis [Not Recovered/Not Resolved]
